FAERS Safety Report 17259419 (Version 1)
Quarter: 2020Q1

REPORT INFORMATION
  Report Type: Spontaneous
  Country: US (occurrence: US)
  Receive Date: 20200110
  Receipt Date: 20200110
  Transmission Date: 20200409
  Serious: No
  Sender: FDA-Public Use
  Company Number: US-009507513-2001USA002107

PATIENT
  Age: 79 Year
  Sex: Male

DRUGS (4)
  1. GLYBURIDE. [Concomitant]
     Active Substance: GLYBURIDE
  2. KEYTRUDA [Suspect]
     Active Substance: PEMBROLIZUMAB
     Indication: HEREDITARY NON-POLYPOSIS COLORECTAL CANCER SYNDROME
     Dosage: UNK
     Dates: start: 20191022, end: 20191022
  3. PRINIVIL [Concomitant]
     Active Substance: LISINOPRIL
  4. PREDNISONE. [Concomitant]
     Active Substance: PREDNISONE

REACTIONS (2)
  - Product use in unapproved indication [Unknown]
  - Dyspnoea [Recovered/Resolved]

NARRATIVE: CASE EVENT DATE: 20191029
